FAERS Safety Report 17782703 (Version 1)
Quarter: 2020Q2

REPORT INFORMATION
  Report Type: Spontaneous
  Country: ZA (occurrence: ZA)
  Receive Date: 20200513
  Receipt Date: 20200513
  Transmission Date: 20200714
  Serious: Yes (Other)
  Sender: FDA-Public Use
  Company Number: ZA-ASTRAZENECA-2020SE60884

PATIENT
  Age: 3 Month
  Sex: Male
  Weight: 4.7 kg

DRUGS (1)
  1. NEXIAM [Suspect]
     Active Substance: ESOMEPRAZOLE
     Indication: GASTROOESOPHAGEAL REFLUX DISEASE
     Dosage: 2.5MG UNKNOWN
     Route: 048

REACTIONS (1)
  - Haematochezia [Unknown]
